FAERS Safety Report 15747337 (Version 1)
Quarter: 2018Q4

REPORT INFORMATION
  Report Type: Spontaneous
  Country: US (occurrence: US)
  Receive Date: 20181220
  Receipt Date: 20181220
  Transmission Date: 20190205
  Serious: No
  Sender: FDA-Public Use
  Company Number: US-AVADEL SPECIALTY PHARMACEUTICALS, LLC-2018AVA00358

PATIENT
  Age: 63 Year
  Sex: Male
  Weight: 64.85 kg

DRUGS (9)
  1. TIZANIDINE. [Concomitant]
     Active Substance: TIZANIDINE
  2. ENTRESTO [Concomitant]
     Active Substance: SACUBITRIL\VALSARTAN
  3. XARELTO [Concomitant]
     Active Substance: RIVAROXABAN
  4. NOVOLOG [Concomitant]
     Active Substance: INSULIN ASPART
  5. NOCTIVA [Suspect]
     Active Substance: DESMOPRESSIN ACETATE
     Indication: NOCTURIA
     Dosage: 0.83 ?G, 1X/DAY 30 MINUTES PRIOR TO BEDTIME
     Route: 045
     Dates: start: 20180914, end: 20180916
  6. LEVEMIR [Concomitant]
     Active Substance: INSULIN DETEMIR
  7. DIGOXIN. [Concomitant]
     Active Substance: DIGOXIN
  8. ATORVASTATIN [Concomitant]
     Active Substance: ATORVASTATIN
  9. UNSPECIFIED ANTIBIOTIC [Concomitant]
     Active Substance: UNSPECIFIED INGREDIENT

REACTIONS (2)
  - Drug ineffective [Recovered/Resolved]
  - Product preparation issue [Recovered/Resolved]

NARRATIVE: CASE EVENT DATE: 20180914
